FAERS Safety Report 5851180-2 (Version None)
Quarter: 2008Q3

REPORT INFORMATION
  Report Type: 
  Country: None (occurrence: None)
  Receive Date: 20080820
  Receipt Date: 20080813
  Transmission Date: 20090109
  Serious: Yes (Other)
  Sender: FDA-Public Use
  Company Number: CA-ASTRAZENECA-2008UW16154

PATIENT
  Age: 684 Month

DRUGS (2)
  1. SENSORCAINE [Suspect]
     Indication: SPINAL ANAESTHESIA
     Dosage: 3 ML
     Route: 037
     Dates: start: 20080401
  2. SENSORCAINE [Suspect]
     Dosage: 1 ML 0.5 %
     Route: 037
     Dates: start: 20080401

REACTIONS (1)
  - DRUG INEFFECTIVE [None]
